FAERS Safety Report 18606958 (Version 1)
Quarter: 2020Q4

REPORT INFORMATION
  Report Type: Spontaneous
  Country: US (occurrence: US)
  Receive Date: 20201211
  Receipt Date: 20201211
  Transmission Date: 20210114
  Serious: No
  Sender: FDA-Public Use
  Company Number: US-KALA PHARAMACEUTICALS-2020KLA00045

PATIENT
  Age: 34 Year
  Sex: Female

DRUGS (3)
  1. INVELTYS [Suspect]
     Active Substance: LOTEPREDNOL ETABONATE
     Dosage: UNK, 2X/DAY
     Dates: start: 20201002, end: 20201010
  2. INVELTYS [Suspect]
     Active Substance: LOTEPREDNOL ETABONATE
     Indication: POSTOPERATIVE CARE
     Dosage: UNK, 4X/DAY
     Dates: start: 20200925, end: 20201001
  3. ARTIFICIAL TEARS [Concomitant]
     Active Substance: GLYCERIN\HYPROMELLOSES\POLYETHYLENE GLYCOL 400
     Dosage: 3-4 TIMES DAILY

REACTIONS (1)
  - Ocular procedural complication [Not Recovered/Not Resolved]

NARRATIVE: CASE EVENT DATE: 20201013
